FAERS Safety Report 6209728-4 (Version None)
Quarter: 2009Q2

REPORT INFORMATION
  Report Type: 
  Country: None (occurrence: None)
  Receive Date: 20090601
  Receipt Date: 20090526
  Transmission Date: 20091009
  Serious: Yes (Other)
  Sender: FDA-Public Use
  Company Number: US-JNJFOC-20090506422

PATIENT
  Sex: Male
  Weight: 90.72 kg

DRUGS (4)
  1. FENTANYL TRANSDERMAL SYSTEM [Suspect]
     Indication: PAIN
     Route: 062
  2. EFFEXOR [Suspect]
     Indication: DEPRESSION
     Route: 048
  3. OXYCODONE [Suspect]
     Indication: PAIN
     Route: 048
  4. VALIUM [Suspect]
     Indication: NERVOUSNESS
     Route: 048

REACTIONS (10)
  - ABDOMINAL DISCOMFORT [None]
  - ANOREXIA [None]
  - DIARRHOEA [None]
  - EATING DISORDER [None]
  - HYPERHIDROSIS [None]
  - INSOMNIA [None]
  - PARAESTHESIA [None]
  - TREATMENT NONCOMPLIANCE [None]
  - TREMOR [None]
  - WEIGHT DECREASED [None]
